FAERS Safety Report 9726520 (Version 1)
Quarter: 2013Q4

REPORT INFORMATION
  Report Type: Spontaneous
  Country: FR (occurrence: None)
  Receive Date: 20131129
  Receipt Date: 20131129
  Transmission Date: 20140711
  Serious: Yes (Other)
  Sender: FDA-Public Use
  Company Number: 2013P1021331

PATIENT
  Age: 31 Year
  Sex: Male

DRUGS (1)
  1. RISPERIDONE [Suspect]
     Indication: SCHIZOPHRENIA
     Dosage: 1 YEAR

REACTIONS (7)
  - Neuroleptic malignant syndrome [None]
  - Rhabdomyolysis [None]
  - Fasciitis [None]
  - Compartment syndrome [None]
  - Polyarteritis nodosa [None]
  - Myositis [None]
  - Muscular dystrophy [None]
